FAERS Safety Report 8061026-2 (Version None)
Quarter: 2012Q1

REPORT INFORMATION
  Report Type: 
  Country: None (occurrence: None)
  Receive Date: 20120120
  Receipt Date: 20110504
  Transmission Date: 20120608
  Serious: No
  Sender: FDA-Public Use
  Company Number: US-ALLERGAN-1106166US

PATIENT
  Age: 64 Year
  Sex: Female

DRUGS (2)
  1. RESTASIS [Suspect]
     Indication: DRY EYE
     Dosage: 1 GTT, BID
     Route: 047
     Dates: start: 20110503
  2. LOTEMAX [Concomitant]
     Indication: ANTIINFLAMMATORY THERAPY
     Dosage: 1 GTT, BID BEFORE RESTASIS
     Route: 047
     Dates: start: 20110503

REACTIONS (1)
  - EYE IRRITATION [None]
